FAERS Safety Report 6265337-2 (Version None)
Quarter: 2009Q3

REPORT INFORMATION
  Report Type: 
  Country: None (occurrence: None)
  Receive Date: 20090709
  Receipt Date: 20090709
  Transmission Date: 20100115
  Serious: Yes (Hospitalization)
  Sender: FDA-Public Use
  Company Number: None

PATIENT
  Sex: Female
  Weight: 69.9 kg

DRUGS (6)
  1. CYTARABINE [Suspect]
     Dosage: 70 MG
  2. DAUNORUBICIN HCL [Suspect]
     Dosage: 92 MG
  3. METHOTREXATE [Suspect]
     Dosage: 15 MG
  4. METHYLPREDNISOLONE [Suspect]
     Dosage: 1320 MG
  5. PEG-L ASPARAGINASE (K-H) [Suspect]
     Dosage: 4000 MG
  6. VINCRISTINE SULFATE [Suspect]
     Dosage: 4 MG

REACTIONS (1)
  - HAEMORRHAGE INTRACRANIAL [None]
